FAERS Safety Report 22616291 (Version 2)
Quarter: 2023Q2

REPORT INFORMATION
  Report Type: Spontaneous
  Country: US (occurrence: US)
  Receive Date: 20230619
  Receipt Date: 20230626
  Transmission Date: 20230721
  Serious: Yes (Other)
  Sender: FDA-Public Use
  Company Number: US-DENTSPLY-2023SCDP000190

PATIENT
  Age: 32 Year
  Sex: Female

DRUGS (2)
  1. LIDOCAINE HYDROCHLORIDE AND EPINEPHRINE BITARTRATE [Suspect]
     Active Substance: EPINEPHRINE BITARTRATE\LIDOCAINE HYDROCHLORIDE
     Indication: Dental local anaesthesia
     Dosage: 1.75 MILLILITER OF LIDOCAINE WITH 1:100,000 (10 MCG/ML) EPINEPHRINE
  2. BENZOCAINE [Concomitant]
     Active Substance: BENZOCAINE
     Indication: Product used for unknown indication
     Dosage: UNK
     Route: 061

REACTIONS (6)
  - Tachycardia [Unknown]
  - Anaphylactic reaction [Unknown]
  - Swelling face [Unknown]
  - Hyperhidrosis [Unknown]
  - Lip swelling [Unknown]
  - Hypersensitivity [Unknown]
